FAERS Safety Report 8380433-1 (Version None)
Quarter: 2012Q2

REPORT INFORMATION
  Report Type: 
  Country: None (occurrence: None)
  Receive Date: 20120523
  Receipt Date: 20120521
  Transmission Date: 20120825
  Serious: Yes (Hospitalization)
  Sender: FDA-Public Use
  Company Number: US-GLAXOSMITHKLINE-A0934598A

PATIENT
  Age: 64 Year
  Sex: Female

DRUGS (5)
  1. VERAPAMIL [Concomitant]
  2. GLYBURIDE [Concomitant]
  3. GLYBURIDE [Concomitant]
  4. AVANDIA [Suspect]
     Indication: DIABETES MELLITUS
     Dosage: 4MG PER DAY
     Route: 048
  5. FLUOXETINE [Concomitant]

REACTIONS (2)
  - THALAMIC INFARCTION [None]
  - CEREBROVASCULAR ACCIDENT [None]
